FAERS Safety Report 23191672 (Version 1)
Quarter: 2023Q4

REPORT INFORMATION
  Report Type: Spontaneous
  Country: MX (occurrence: MX)
  Receive Date: 20231116
  Receipt Date: 20231116
  Transmission Date: 20240110
  Serious: Yes (Other)
  Sender: FDA-Public Use
  Company Number: MX-ORPHANEU-2023008018

PATIENT

DRUGS (2)
  1. HEME [Suspect]
     Active Substance: HEME
     Indication: Porphyria acute
     Route: 065
  2. PANHEMATIN [Suspect]
     Active Substance: HEMIN
     Indication: Porphyria acute
     Route: 065

REACTIONS (4)
  - Porphyria [Unknown]
  - Paralysis [Unknown]
  - Renal injury [Unknown]
  - Therapeutic product effect incomplete [Recovered/Resolved]
